FAERS Safety Report 16170118 (Version 1)
Quarter: 2019Q2

REPORT INFORMATION
  Report Type: Spontaneous
  Country: US (occurrence: US)
  Receive Date: 20190408
  Receipt Date: 20190408
  Transmission Date: 20190711
  Serious: No
  Sender: FDA-Public Use
  Company Number: US-PFIZER INC-2019140175

PATIENT
  Age: 49 Year
  Sex: Female

DRUGS (2)
  1. XELJANZ XR [Suspect]
     Active Substance: TOFACITINIB CITRATE
     Indication: ALOPECIA
     Dosage: 11 MG, UNK
  2. RASUVO [Suspect]
     Active Substance: METHOTREXATE SODIUM

REACTIONS (2)
  - Hepatitis B virus test positive [Unknown]
  - Product use in unapproved indication [Unknown]
